FAERS Safety Report 16907694 (Version 1)
Quarter: 2019Q4

REPORT INFORMATION
  Report Type: Spontaneous
  Country: US (occurrence: US)
  Receive Date: 20191011
  Receipt Date: 20191011
  Transmission Date: 20200122
  Serious: No
  Sender: FDA-Public Use
  Company Number: US-BIOGEN-2019BI00793890

PATIENT
  Sex: Female

DRUGS (1)
  1. TECFIDERA [Suspect]
     Active Substance: DIMETHYL FUMARATE
     Indication: MULTIPLE SCLEROSIS
     Route: 065
     Dates: start: 20130509

REACTIONS (5)
  - Drug intolerance [Recovered/Resolved]
  - Hot flush [Unknown]
  - Post procedural infection [Recovered/Resolved]
  - Phyllodes tumour [Recovered/Resolved]
  - Bone graft [Unknown]
